FAERS Safety Report 12835744 (Version 1)
Quarter: 2016Q4

REPORT INFORMATION
  Report Type: Spontaneous
  Country: US (occurrence: US)
  Receive Date: 20161007
  Receipt Date: 20161007
  Transmission Date: 20170207
  Serious: Yes (Hospitalization)
  Sender: FDA-Public Use
  Company Number: None

PATIENT
  Age: 85 Year
  Sex: Male

DRUGS (2)
  1. WARFARIN [Suspect]
     Active Substance: WARFARIN
     Indication: ATRIAL FIBRILLATION
     Dates: start: 20160319, end: 20160901
  2. ASPIRIN. [Suspect]
     Active Substance: ASPIRIN
     Indication: CORONARY ARTERY DISEASE
     Route: 048
     Dates: start: 20160322, end: 20160901

REACTIONS (8)
  - Dyspepsia [None]
  - Alcohol use [None]
  - White blood cell count increased [None]
  - Anaemia [None]
  - International normalised ratio increased [None]
  - Dysuria [None]
  - Haemorrhagic arteriovenous malformation [None]
  - Vomiting [None]

NARRATIVE: CASE EVENT DATE: 20160901
